FAERS Safety Report 7148588-4 (Version None)
Quarter: 2010Q4

REPORT INFORMATION
  Report Type: 
  Country: None (occurrence: None)
  Receive Date: 20101209
  Receipt Date: 20100729
  Transmission Date: 20110411
  Serious: Yes (Other)
  Sender: FDA-Public Use
  Company Number: A0777214A

PATIENT
  Age: 49 Year
  Sex: Male

DRUGS (2)
  1. AVANDAMET [Suspect]
     Route: 048
     Dates: start: 20050610
  2. AVANDIA [Suspect]
     Dosage: 4MG TWICE PER DAY
     Route: 048
     Dates: start: 20060605, end: 20070901

REACTIONS (1)
  - CARDIAC FAILURE CONGESTIVE [None]
